FAERS Safety Report 19197348 (Version 10)
Quarter: 2023Q1

REPORT INFORMATION
  Report Type: Report from Study
  Country: US (occurrence: US)
  Receive Date: 20210429
  Receipt Date: 20230321
  Transmission Date: 20230418
  Serious: Yes (Other)
  Sender: FDA-Public Use
  Company Number: US-TAKEDA-US202009979

PATIENT
  Age: 65 Year
  Sex: Female
  Weight: 71 kg

DRUGS (61)
  1. ICATIBANT [Suspect]
     Active Substance: ICATIBANT ACETATE
     Indication: Immune system disorder
     Dosage: 30 MILLIGRAM
     Route: 058
     Dates: start: 20121023
  2. ICATIBANT [Suspect]
     Active Substance: ICATIBANT ACETATE
     Indication: Immune system disorder
     Dosage: 30 MILLIGRAM
     Route: 058
     Dates: start: 20121023
  3. GAMMAGARD LIQUID [Suspect]
     Active Substance: HUMAN IMMUNOGLOBULIN G
     Indication: Myasthenia gravis
     Dosage: 65 GRAM, Q2WEEKS
     Route: 042
     Dates: start: 20210407
  4. GAMMAGARD LIQUID [Suspect]
     Active Substance: HUMAN IMMUNOGLOBULIN G
     Indication: Polymyositis
     Dosage: 65 GRAM, Q2WEEKS
     Route: 042
     Dates: start: 20230126
  5. GAMMAGARD LIQUID [Suspect]
     Active Substance: HUMAN IMMUNOGLOBULIN G
     Indication: Immune system disorder
  6. CONESTAT ALFA [Suspect]
     Active Substance: CONESTAT ALFA
     Indication: Product used for unknown indication
     Dosage: UNK
     Route: 058
  7. PREDNISONE [Concomitant]
     Active Substance: PREDNISONE
     Indication: Product used for unknown indication
  8. ESTRADIOL [Concomitant]
     Active Substance: ESTRADIOL
     Indication: Product used for unknown indication
     Dosage: UNK, 1/WEEK
     Route: 065
  9. VITAMIN D3 [Concomitant]
     Active Substance: CHOLECALCIFEROL
     Indication: Product used for unknown indication
  10. PROGESTERONE [Concomitant]
     Active Substance: PROGESTERONE
     Indication: Product used for unknown indication
  11. ASHWAGANDHA [WITHANIA SOMNIFERA ROOT] [Concomitant]
     Indication: Product used for unknown indication
  12. RESTASIS [Concomitant]
     Active Substance: CYCLOSPORINE
     Indication: Product used for unknown indication
  13. CLOBETASOL [Concomitant]
     Active Substance: CLOBETASOL
  14. IBUPROFEN [Concomitant]
     Active Substance: IBUPROFEN
  15. DIPHENHYDRAMINE [Concomitant]
     Active Substance: DIPHENHYDRAMINE
  16. SIMETHICONE (DIMETHICONE) [Concomitant]
     Active Substance: DIMETHICONE
  17. BRIMONIDINE [Concomitant]
     Active Substance: BRIMONIDINE TARTRATE
  18. LOTEMAX [Concomitant]
     Active Substance: LOTEPREDNOL ETABONATE
  19. LOPERAMIDE [Concomitant]
     Active Substance: LOPERAMIDE
  20. CURCUMIN [Concomitant]
     Active Substance: CURCUMIN
  21. CALCIUM CITRATE [Concomitant]
     Active Substance: CALCIUM CITRATE
  22. HAEGARDA [Concomitant]
     Active Substance: HUMAN C1-ESTERASE INHIBITOR
  23. ACETAMINOPHEN [Concomitant]
     Active Substance: ACETAMINOPHEN
  24. DIAMINE OXIDASE [Concomitant]
  25. HEPARIN [Concomitant]
     Active Substance: HEPARIN SODIUM
  26. SODIUM CHLORIDE [Concomitant]
     Active Substance: SODIUM CHLORIDE
  27. EPINEPHRINE [Concomitant]
     Active Substance: EPINEPHRINE
  28. SOLU-MEDROL [Concomitant]
     Active Substance: METHYLPREDNISOLONE SODIUM SUCCINATE
  29. BESIVANCE [Concomitant]
     Active Substance: BESIFLOXACIN
  30. PROLENSA [Concomitant]
     Active Substance: BROMFENAC SODIUM
  31. BERINERT [Concomitant]
     Active Substance: HUMAN C1-ESTERASE INHIBITOR
  32. PNEUMOVAX 23 [Concomitant]
     Active Substance: PNEUMOCOCCAL VACCINE, POLYVALENT 23
  33. SHINGRIX [Concomitant]
     Active Substance: RECOMBINANT VARICELLA ZOSTER VIRUS (VZV) GLYCOPROTEIN E
  34. TUBERCULIN NOS [Concomitant]
     Active Substance: TUBERCULIN PURIFIED PROTEIN DERIVATIVE
  35. CLONAZEPAM [Concomitant]
     Active Substance: CLONAZEPAM
  36. FLUBLOK QUADRIVALENT NOS [Concomitant]
     Active Substance: INFLUENZA VIRUS VACCINE
  37. GINGER ROOT [ZINGIBER OFFICINALE RHIZOME] [Concomitant]
  38. METHYLPREDNISOLONE [Concomitant]
     Active Substance: METHYLPREDNISOLONE
  39. IMODIUM A-D [Concomitant]
     Active Substance: LOPERAMIDE HYDROCHLORIDE
  40. VALERIAN [Concomitant]
     Active Substance: VALERIAN
  41. XYLOMETAZOLINE HYDROCHLORIDE [Concomitant]
     Active Substance: XYLOMETAZOLINE HYDROCHLORIDE
  42. COLLAGEN [Concomitant]
     Active Substance: COLLAGEN
  43. SACCHAROMYCES CEREVISIAE [Concomitant]
     Active Substance: SACCHAROMYCES CEREVISIAE
  44. FORTEO [Concomitant]
     Active Substance: TERIPARATIDE
  45. DEPO-MEDROL [Concomitant]
     Active Substance: METHYLPREDNISOLONE ACETATE
  46. MESTINON [Concomitant]
     Active Substance: PYRIDOSTIGMINE BROMIDE
  47. BENADRYL [Concomitant]
     Active Substance: DIPHENHYDRAMINE HYDROCHLORIDE
  48. CORTIZONE 10 [Concomitant]
     Active Substance: HYDROCORTISONE
  49. POTASSIUM [Concomitant]
     Active Substance: POTASSIUM
  50. HERBALS [Concomitant]
     Active Substance: HERBALS
  51. ACIDIL [Concomitant]
  52. SODIUM CHLORIDE [Concomitant]
     Active Substance: SODIUM CHLORIDE
  53. POTASSIUM CITRATE [Concomitant]
     Active Substance: POTASSIUM CITRATE
  54. SHINGRIX [Concomitant]
     Active Substance: RECOMBINANT VARICELLA ZOSTER VIRUS (VZV) GLYCOPROTEIN E
  55. Lmx [Concomitant]
  56. HYDROCORTISONE [Concomitant]
     Active Substance: HYDROCORTISONE
  57. SYSTANE HYDRATION PF PRESERVATIVE FREE [Concomitant]
     Active Substance: POLYETHYLENE GLYCOL 400\PROPYLENE GLYCOL
  58. LIDOCAINE [Concomitant]
     Active Substance: LIDOCAINE
  59. Acetyl l carnitine [Concomitant]
  60. ALBUTEROL SULFATE [Concomitant]
     Active Substance: ALBUTEROL SULFATE
  61. DIPHENHYDRAMINE HYDROCHLORIDE [Concomitant]
     Active Substance: DIPHENHYDRAMINE HYDROCHLORIDE

REACTIONS (13)
  - Cataract [Unknown]
  - Vein disorder [Unknown]
  - Rash papular [Recovered/Resolved]
  - Catheter site erythema [Unknown]
  - Splinter [Unknown]
  - Infusion site pain [Unknown]
  - Contusion [Unknown]
  - Hereditary angioedema [Unknown]
  - Diarrhoea [Unknown]
  - Hypersensitivity [Unknown]
  - Erythema [Recovered/Resolved]
  - Rash [Unknown]
  - Product use in unapproved indication [Unknown]

NARRATIVE: CASE EVENT DATE: 20210413
